FAERS Safety Report 4365065-4 (Version None)
Quarter: 2004Q2

REPORT INFORMATION
  Report Type: 
  Country: None (occurrence: None)
  Receive Date: 20040521
  Receipt Date: 20040429
  Transmission Date: 20050107
  Serious: Yes (Disabling)
  Sender: FDA-Public Use
  Company Number: A04200400396

PATIENT
  Age: 72 Year
  Sex: Male

DRUGS (2)
  1. ELOXATIN [Suspect]
     Indication: COLON CANCER
     Dosage: 77.4 MG/M2 OTHER (CUMULATIVE DOSE : 154.8 MG/M2), INTRAVENOUS
     Route: 041
     Dates: start: 20040225, end: 20040225
  2. ELOXATIN [Suspect]
     Indication: METASTASES TO LUNG
     Dosage: 77.4 MG/M2 OTHER (CUMULATIVE DOSE : 154.8 MG/M2), INTRAVENOUS
     Route: 041
     Dates: start: 20040225, end: 20040225

REACTIONS (3)
  - HOARSENESS [None]
  - METASTASIS [None]
  - VOCAL CORD PARALYSIS [None]
